FAERS Safety Report 5820034-X (Version None)
Quarter: 2008Q3

REPORT INFORMATION
  Report Type: 
  Country: None (occurrence: None)
  Receive Date: 20080718
  Receipt Date: 20080718
  Transmission Date: 20090109
  Serious: Yes (Life-Threatening, Hospitalization, Other)
  Sender: FDA-Public Use
  Company Number: None

PATIENT
  Age: 62 Year
  Sex: Female
  Weight: 56.6996 kg

DRUGS (3)
  1. NEURONTIN [Suspect]
     Indication: CARPAL TUNNEL SYNDROME
     Dosage: (DURATION: APPROXIMATELY 4 1/2 YEARS)
  2. NEURONTIN [Suspect]
     Indication: TENDONITIS
     Dosage: (DURATION: APPROXIMATELY 4 1/2 YEARS)
  3. BEXTRA [Suspect]
     Indication: NECK INJURY
     Dosage: (DURATION: APPROXIMATELY 4 1/2 YEARS)

REACTIONS (27)
  - ANAL HAEMORRHAGE [None]
  - BALANCE DISORDER [None]
  - BEDRIDDEN [None]
  - BONE PAIN [None]
  - CONFUSIONAL STATE [None]
  - CONVULSION [None]
  - COORDINATION ABNORMAL [None]
  - DIABETES MELLITUS [None]
  - DYSARTHRIA [None]
  - DYSSTASIA [None]
  - FALL [None]
  - GAIT DISTURBANCE [None]
  - GASTROINTESTINAL HAEMORRHAGE [None]
  - HALLUCINATION [None]
  - HYPERTENSION [None]
  - HYPOAESTHESIA [None]
  - IMPAIRED WORK ABILITY [None]
  - MALAISE [None]
  - MIGRAINE [None]
  - MULTIPLE ALLERGIES [None]
  - NERVOUSNESS [None]
  - OVERDOSE [None]
  - PARAESTHESIA [None]
  - PSYCHOTIC DISORDER [None]
  - TINNITUS [None]
  - VERTIGO [None]
  - WEIGHT DECREASED [None]
